FAERS Safety Report 9541732 (Version 1)
Quarter: 2013Q3

REPORT INFORMATION
  Report Type: Spontaneous
  Country: US (occurrence: None)
  Receive Date: 20130919
  Receipt Date: 20130919
  Transmission Date: 20140515
  Serious: Yes (Hospitalization)
  Sender: FDA-Public Use
  Company Number: None

PATIENT
  Age: 68 Year
  Sex: Female
  Weight: 65.8 kg

DRUGS (2)
  1. CARBOPLATIN [Suspect]
     Dates: end: 20130826
  2. PACLITAXEL (TAXOL) [Suspect]
     Dates: end: 20130826

REACTIONS (2)
  - Pancytopenia [None]
  - Body temperature increased [None]
